FAERS Safety Report 23317959 (Version 2)
Quarter: 2024Q1

REPORT INFORMATION
  Report Type: Spontaneous
  Country: US (occurrence: US)
  Receive Date: 20231219
  Receipt Date: 20240313
  Transmission Date: 20240410
  Serious: No
  Sender: FDA-Public Use
  Company Number: US-SA-SAC20231212001097

PATIENT
  Age: 40 Year
  Sex: Female

DRUGS (1)
  1. DUPIXENT [Suspect]
     Active Substance: DUPILUMAB
     Indication: Sinusitis
     Dosage: EVERY OTHER WEEK DOSE OR AMOUNT: 300MG
     Route: 058

REACTIONS (4)
  - Nasal congestion [Not Recovered/Not Resolved]
  - Anosmia [Not Recovered/Not Resolved]
  - Injection site urticaria [Recovered/Resolved]
  - Drug ineffective for unapproved indication [Unknown]
